FAERS Safety Report 20659790 (Version 1)
Quarter: 2022Q1

REPORT INFORMATION
  Report Type: Spontaneous
  Country: US (occurrence: US)
  Receive Date: 20220331
  Receipt Date: 20220331
  Transmission Date: 20220424
  Serious: No
  Sender: FDA-Public Use
  Company Number: US-JNJFOC-20220362114

PATIENT
  Sex: Female

DRUGS (2)
  1. OPSUMIT [Suspect]
     Active Substance: MACITENTAN
     Indication: Product used for unknown indication
     Route: 048
  2. AZELASTINE [Suspect]
     Active Substance: AZELASTINE
     Indication: Nasal congestion
     Route: 065

REACTIONS (2)
  - Nasal congestion [Unknown]
  - Somnolence [Unknown]
